FAERS Safety Report 4325577-6 (Version None)
Quarter: 2004Q1

REPORT INFORMATION
  Report Type: 
  Country: None (occurrence: None)
  Receive Date: 20040329
  Receipt Date: 20040322
  Transmission Date: 20041129
  Serious: Yes (Other)
  Sender: FDA-Public Use
  Company Number: 200412151US

PATIENT
  Sex: Male
  Weight: 104 kg

DRUGS (13)
  1. LANTUS [Suspect]
     Indication: DIABETES MELLITUS NON-INSULIN-DEPENDENT
     Dosage: DOSE UNIT: UNITS
     Route: 051
     Dates: start: 20031001
  2. HUMALOG [Concomitant]
     Indication: DIABETES MELLITUS NON-INSULIN-DEPENDENT
     Dosage: DOSE: SLIDING SCALE
  3. ASPIRIN [Concomitant]
  4. VITAMIN E [Concomitant]
     Dosage: DOSE: UNKNOWN
  5. VITAMIN C [Concomitant]
     Dosage: DOSE: UNKNOWN
  6. FISH OIL [Concomitant]
     Dosage: DOSE: UNKNOWN
  7. LIPITOR [Concomitant]
  8. SERUMLIPIDREDUCING AGENTS [Concomitant]
  9. NITRO PATCH [Concomitant]
  10. GLUCOPHAGE [Concomitant]
     Indication: DIABETES MELLITUS NON-INSULIN-DEPENDENT
  11. PLAVIX [Concomitant]
  12. ZESTRIL [Concomitant]
  13. MAGNESIUM OXIDE [Concomitant]
     Dosage: DOSE: UNKNOWN

REACTIONS (1)
  - BLOOD PRESSURE SYSTOLIC INCREASED [None]
